FAERS Safety Report 9513468 (Version 1)
Quarter: 2013Q3

REPORT INFORMATION
  Report Type: Spontaneous
  Country: US (occurrence: US)
  Receive Date: 20130910
  Receipt Date: 20130910
  Transmission Date: 20140515
  Serious: No
  Sender: FDA-Public Use
  Company Number: US-TARO-2013P1003658

PATIENT
  Age: 71 Year
  Sex: Female
  Weight: 104.33 kg

DRUGS (10)
  1. WARFARIN SODIUM TABLETS USP 4MG [Suspect]
     Route: 048
     Dates: start: 20130101, end: 20130319
  2. WARFARIN SODIUM TABLETS USP 4MG [Suspect]
     Route: 048
     Dates: start: 20130101, end: 20130319
  3. WARFARIN SODIUM TABLETS USP 4MG [Suspect]
     Route: 048
     Dates: start: 20130321
  4. PHENYTOIN EXTENDED [Concomitant]
     Dates: start: 1987
  5. PROPRANOLOL [Concomitant]
     Dates: start: 1986
  6. AMLODIPINE [Concomitant]
     Dates: start: 1986
  7. NIZATIDINE [Concomitant]
     Dates: start: 1986
  8. HYDROCHLOROTHIAZIDE [Concomitant]
     Dates: start: 1986
  9. PROPRANOLOL [Concomitant]
     Dates: start: 1986
  10. SERTRALINE [Concomitant]
     Dates: start: 1986

REACTIONS (2)
  - Prothrombin time abnormal [Recovered/Resolved]
  - International normalised ratio fluctuation [Recovered/Resolved]
